FAERS Safety Report 6738725-5 (Version None)
Quarter: 2010Q2

REPORT INFORMATION
  Report Type: 
  Country: None (occurrence: None)
  Receive Date: 20100524
  Receipt Date: 20100512
  Transmission Date: 20101027
  Serious: Yes (Death, Hospitalization)
  Sender: FDA-Public Use
  Company Number: US-PFIZER INC-2010059993

PATIENT
  Age: 75 Year
  Sex: Male
  Weight: 86 kg

DRUGS (2)
  1. SUNITINIB MALATE [Suspect]
     Indication: NON-SMALL CELL LUNG CANCER
     Dosage: 37.5 MG, 1X/DAY
     Route: 048
     Dates: start: 20100415, end: 20100422
  2. PEMETREXED [Suspect]
     Indication: NON-SMALL CELL LUNG CANCER
     Dosage: 500 MG/M2 OVER 10 MIN ON DAY1
     Route: 042
     Dates: start: 20100415, end: 20100415

REACTIONS (1)
  - LUNG INFECTION [None]
